FAERS Safety Report 7421616-4 (Version None)
Quarter: 2011Q2

REPORT INFORMATION
  Report Type: 
  Country: None (occurrence: None)
  Receive Date: 20110418
  Receipt Date: 20110414
  Transmission Date: 20111010
  Serious: Yes (Other)
  Sender: FDA-Public Use
  Company Number: US-PFIZER INC-2010130836

PATIENT
  Sex: Female

DRUGS (4)
  1. LYRICA [Suspect]
     Indication: ABDOMINAL PAIN UPPER
  2. KLONOPIN [Concomitant]
     Dosage: 1 MG, 2X/DAY
  3. LYRICA [Suspect]
     Indication: GENERALISED ANXIETY DISORDER
     Dosage: 50 MG, 2X/DAY
     Route: 048
  4. ZYRTEC [Concomitant]
     Indication: MYCOTIC ALLERGY
     Dosage: UNK

REACTIONS (6)
  - WEIGHT INCREASED [None]
  - CONSTIPATION [None]
  - ABDOMINAL DISTENSION [None]
  - DRY MOUTH [None]
  - BLOOD CHOLESTEROL INCREASED [None]
  - NERVOUS SYSTEM DISORDER [None]
